FAERS Safety Report 10386545 (Version 1)
Quarter: 2014Q3

REPORT INFORMATION
  Report Type: Spontaneous
  Country: US (occurrence: US)
  Receive Date: 20140815
  Receipt Date: 20140815
  Transmission Date: 20150326
  Serious: No
  Sender: FDA-Public Use
  Company Number: US-ASTRAZENECA-2014SE59840

PATIENT
  Age: 24431 Day
  Sex: Female
  Weight: 58.5 kg

DRUGS (4)
  1. LEVOTHYROXINE SODIUM. [Concomitant]
     Active Substance: LEVOTHYROXINE SODIUM
     Indication: HYPOTHYROIDISM
  2. NEXIUM 24HR [Suspect]
     Active Substance: ESOMEPRAZOLE MAGNESIUM
     Indication: GASTROOESOPHAGEAL REFLUX DISEASE
     Route: 048
  3. OMEPRAZOLE. [Suspect]
     Active Substance: OMEPRAZOLE
     Route: 048
     Dates: start: 20140805
  4. SIMVASTATIN. [Concomitant]
     Active Substance: SIMVASTATIN
     Indication: BLOOD CHOLESTEROL INCREASED

REACTIONS (11)
  - Anxiety [Recovering/Resolving]
  - Intentional product misuse [Unknown]
  - Feeling jittery [Recovering/Resolving]
  - Thirst [Recovering/Resolving]
  - Pruritus generalised [Recovering/Resolving]
  - Hypersensitivity [Unknown]
  - Pollakiuria [Recovering/Resolving]
  - Oesophageal disorder [Unknown]
  - Hypertonic bladder [Recovering/Resolving]
  - Painful defaecation [Recovering/Resolving]
  - Insomnia [Recovering/Resolving]

NARRATIVE: CASE EVENT DATE: 20140807
